FAERS Safety Report 8193000-X (Version None)
Quarter: 2012Q1

REPORT INFORMATION
  Report Type: 
  Country: None (occurrence: None)
  Receive Date: 20120308
  Receipt Date: 20120228
  Transmission Date: 20120608
  Serious: Yes (Other)
  Sender: FDA-Public Use
  Company Number: FR-JNJFOC-20120300312

PATIENT
  Age: 31 Year
  Sex: Female

DRUGS (3)
  1. PHENOXYMETHYLPENICILLIN [Suspect]
     Indication: BRONCHITIS
     Route: 048
     Dates: start: 20111223, end: 20111231
  2. REMICADE [Suspect]
     Indication: CROHN'S DISEASE
     Route: 042
     Dates: start: 20090101
  3. AMOXICILLIN TRIHYDRATE [Suspect]
     Indication: BRONCHITIS
     Route: 048
     Dates: start: 20120101, end: 20120106

REACTIONS (2)
  - ASTHMA [None]
  - ECZEMA [None]
